FAERS Safety Report 8320993-X (Version None)
Quarter: 2012Q2

REPORT INFORMATION
  Report Type: 
  Country: None (occurrence: None)
  Receive Date: 20120430
  Receipt Date: 20120424
  Transmission Date: 20120825
  Serious: Yes (Life-Threatening, Hospitalization)
  Sender: FDA-Public Use
  Company Number: US-BRACCO-007886

PATIENT
  Age: 42 Year
  Sex: Female
  Weight: 105 kg

DRUGS (12)
  1. CELEXA [Concomitant]
  2. FUROSEMIDE [Concomitant]
  3. MULTIHANCE [Suspect]
     Indication: NUCLEAR MAGNETIC RESONANCE IMAGING
     Route: 042
     Dates: start: 20120416, end: 20120416
  4. MULTIHANCE [Suspect]
     Indication: VISION BLURRED
     Route: 042
     Dates: start: 20120416, end: 20120416
  5. CLINDAMYCIN/BENZOYL PEROXIDE [Concomitant]
     Route: 061
  6. DIPHENHYDRAMINE HCL [Concomitant]
     Dosage: EVERY FOUR HOURS AS NEEDED
  7. CARVEDILOL [Concomitant]
  8. MULTIHANCE [Suspect]
     Indication: HEADACHE
     Route: 042
     Dates: start: 20120416, end: 20120416
  9. MULTIHANCE [Suspect]
     Indication: OPTIC NEURITIS
     Route: 042
     Dates: start: 20120416, end: 20120416
  10. CALCIUM WITH VITAMIN D [Concomitant]
  11. ASPIRIN [Concomitant]
  12. LORATADINE [Concomitant]
     Dosage: USES SEASONALLY

REACTIONS (6)
  - VOMITING [None]
  - FOAMING AT MOUTH [None]
  - DEPRESSED LEVEL OF CONSCIOUSNESS [None]
  - CHEST PAIN [None]
  - RESPIRATORY FAILURE [None]
  - NAUSEA [None]
